FAERS Safety Report 18372843 (Version 1)
Quarter: 2020Q4

REPORT INFORMATION
  Report Type: Spontaneous
  Country: FR (occurrence: FR)
  Receive Date: 20201012
  Receipt Date: 20201012
  Transmission Date: 20210114
  Serious: Yes (Other)
  Sender: FDA-Public Use
  Company Number: FR-PFIZER INC-2020386693

PATIENT
  Age: 78 Year
  Sex: Male

DRUGS (7)
  1. AMAREL [Concomitant]
     Active Substance: GLIMEPIRIDE
     Dosage: 1MG (1 TABLET ON MORNING)
     Route: 065
  2. PRAVASTATINE ACCORD [Concomitant]
     Active Substance: PRAVASTATIN SODIUM
     Dosage: 10MG
     Route: 065
  3. LEVOTHYROX [Concomitant]
     Active Substance: LEVOTHYROXINE
     Dosage: 75 MICROGRAM (1 SCORED TABLET ON MORNING)
     Route: 065
  4. METFORMINE BLUEFISH [Concomitant]
     Dosage: 850 MG, 3X/DAY
     Route: 065
  5. APROVEL [Concomitant]
     Active Substance: IRBESARTAN
     Dosage: 150MG (1 TABLET ON MORNING)
     Route: 065
  6. OXALIPLATIN. [Suspect]
     Active Substance: OXALIPLATIN
     Indication: COLORECTAL CANCER METASTATIC
     Dosage: 85 MG/M2, OXALIPLATIN 200MG/40ML
     Route: 065
  7. LERCAN [Concomitant]
     Active Substance: LERCANIDIPINE
     Dosage: 10MG (1 TABLET ON MORNING)
     Route: 065

REACTIONS (4)
  - Erythema [Unknown]
  - Pruritus [Unknown]
  - Angioedema [Unknown]
  - Neuropathy peripheral [Recovered/Resolved]

NARRATIVE: CASE EVENT DATE: 20200701
